FAERS Safety Report 6169176-2 (Version None)
Quarter: 2009Q2

REPORT INFORMATION
  Report Type: 
  Country: None (occurrence: None)
  Receive Date: 20090427
  Receipt Date: 20090421
  Transmission Date: 20091009
  Serious: Yes (Life-Threatening, Hospitalization)
  Sender: FDA-Public Use
  Company Number: GB-ASTRAZENECA-2009GB00925

PATIENT
  Age: 60 Year
  Sex: Female

DRUGS (12)
  1. MEROPENEM TRIHYDRATE [Suspect]
     Indication: ABDOMINAL INFECTION
     Route: 042
     Dates: start: 20090223, end: 20090318
  2. ASPIRIN [Concomitant]
  3. ATORVASTATIN [Concomitant]
  4. CALCIUM CARBONATE [Concomitant]
  5. CITALOPRAM [Concomitant]
  6. FERROUS FUMARATE [Concomitant]
  7. LEVOTHYROXINE SODIUM [Concomitant]
  8. OMEPRAZOLE [Concomitant]
  9. PREDNISOLONE [Concomitant]
  10. RISEDRONATE SODIUM [Concomitant]
  11. SODIUM BICARBONATE [Concomitant]
  12. TACROLIMUS [Concomitant]

REACTIONS (1)
  - PANCYTOPENIA [None]
